FAERS Safety Report 22947709 (Version 5)
Quarter: 2025Q2

REPORT INFORMATION
  Report Type: Spontaneous
  Country: CA (occurrence: CA)
  Receive Date: 20230915
  Receipt Date: 20250604
  Transmission Date: 20250716
  Serious: Yes (Death, Hospitalization, Other)
  Sender: MYLAN
  Company Number: CA-MYLANLABS-2023M1092612

PATIENT
  Age: 54 Year
  Sex: Male

DRUGS (81)
  1. SERTRALINE [Interacting]
     Active Substance: SERTRALINE HYDROCHLORIDE
     Indication: Bipolar disorder
  2. SERTRALINE [Interacting]
     Active Substance: SERTRALINE HYDROCHLORIDE
  3. SERTRALINE [Interacting]
     Active Substance: SERTRALINE HYDROCHLORIDE
     Indication: Mental disorder
  4. SERTRALINE [Interacting]
     Active Substance: SERTRALINE HYDROCHLORIDE
     Indication: Bipolar disorder
  5. VALPROIC ACID [Interacting]
     Active Substance: VALPROIC ACID
     Indication: Bipolar disorder
  6. VALPROIC ACID [Interacting]
     Active Substance: VALPROIC ACID
     Indication: Bipolar disorder
  7. VALPROIC ACID [Interacting]
     Active Substance: VALPROIC ACID
     Indication: Mental disorder
  8. CELECOXIB [Interacting]
     Active Substance: CELECOXIB
     Indication: Psychotic disorder
  9. QUETIAPINE [Interacting]
     Active Substance: QUETIAPINE
     Indication: Bipolar disorder
  10. QUETIAPINE [Interacting]
     Active Substance: QUETIAPINE
     Indication: Depression
  11. ATAZANAVIR [Interacting]
     Active Substance: ATAZANAVIR
     Indication: HIV infection
  12. BUPROPION [Interacting]
     Active Substance: BUPROPION
     Indication: Depression
  13. BUPROPION [Interacting]
     Active Substance: BUPROPION
     Indication: Mental disorder
  14. BUPROPION [Interacting]
     Active Substance: BUPROPION
     Indication: Bipolar disorder
  15. BUPROPION [Interacting]
     Active Substance: BUPROPION
     Indication: Product used for unknown indication
  16. BUPROPION HYDROCHLORIDE [Interacting]
     Active Substance: BUPROPION HYDROCHLORIDE
     Indication: Depression
  17. BUPROPION HYDROCHLORIDE [Interacting]
     Active Substance: BUPROPION HYDROCHLORIDE
     Indication: Product used for unknown indication
  18. CLONAZEPAM [Interacting]
     Active Substance: CLONAZEPAM
     Indication: Bipolar disorder
  19. CLONAZEPAM [Interacting]
     Active Substance: CLONAZEPAM
     Indication: Depression
  20. CLONAZEPAM [Interacting]
     Active Substance: CLONAZEPAM
     Indication: Mental disorder
  21. EFAVIRENZ [Interacting]
     Active Substance: EFAVIRENZ
     Indication: HIV infection
  22. EFAVIRENZ [Interacting]
     Active Substance: EFAVIRENZ
  23. EFAVIRENZ [Interacting]
     Active Substance: EFAVIRENZ
  24. EFAVIRENZ [Interacting]
     Active Substance: EFAVIRENZ
  25. EFAVIRENZ [Interacting]
     Active Substance: EFAVIRENZ
     Dosage: 400 MILLIGRAM, QD (1 EVERY 12 HOURS)
  26. ENFUVIRTIDE [Interacting]
     Active Substance: ENFUVIRTIDE
     Indication: HIV infection
  27. ISENTRESS [Interacting]
     Active Substance: RALTEGRAVIR POTASSIUM
     Indication: HIV infection
     Dosage: 800 MILLIGRAM, QD (1 EVERY 1 DAYS)
  28. ISENTRESS [Interacting]
     Active Substance: RALTEGRAVIR POTASSIUM
     Dosage: 400 MILLIGRAM, BID (1 EVERY 12 HOURS)
  29. ISENTRESS [Interacting]
     Active Substance: RALTEGRAVIR POTASSIUM
  30. KALETRA [Interacting]
     Active Substance: LOPINAVIR\RITONAVIR
     Indication: HIV infection
  31. KALETRA [Interacting]
     Active Substance: LOPINAVIR\RITONAVIR
  32. KALETRA [Interacting]
     Active Substance: LOPINAVIR\RITONAVIR
  33. LAMIVUDINE [Interacting]
     Active Substance: LAMIVUDINE
     Indication: HIV infection
  34. LAMIVUDINE [Interacting]
     Active Substance: LAMIVUDINE
  35. LAMIVUDINE [Interacting]
     Active Substance: LAMIVUDINE
  36. LOPINAVIR\RITONAVIR [Interacting]
     Active Substance: LOPINAVIR\RITONAVIR
     Indication: HIV infection
  37. LOPINAVIR\RITONAVIR [Interacting]
     Active Substance: LOPINAVIR\RITONAVIR
  38. LOPINAVIR\RITONAVIR [Interacting]
     Active Substance: LOPINAVIR\RITONAVIR
  39. QUETIAPINE FUMARATE [Interacting]
     Active Substance: QUETIAPINE FUMARATE
     Indication: Depression
  40. QUETIAPINE FUMARATE [Interacting]
     Active Substance: QUETIAPINE FUMARATE
     Indication: Bipolar disorder
  41. QUETIAPINE FUMARATE [Interacting]
     Active Substance: QUETIAPINE FUMARATE
     Indication: Mental disorder
  42. QUETIAPINE FUMARATE [Interacting]
     Active Substance: QUETIAPINE FUMARATE
     Indication: Depression
  43. QUETIAPINE FUMARATE [Interacting]
     Active Substance: QUETIAPINE FUMARATE
     Indication: Bipolar disorder
  44. QUETIAPINE FUMARATE [Interacting]
     Active Substance: QUETIAPINE FUMARATE
     Indication: Depression
  45. QUETIAPINE FUMARATE [Interacting]
     Active Substance: QUETIAPINE FUMARATE
     Indication: Bipolar disorder
  46. RALTEGRAVIR POTASSIUM [Interacting]
     Active Substance: RALTEGRAVIR POTASSIUM
     Indication: HIV infection
     Dosage: 800 MILLIGRAM, QD ( 1 EVERY 1 DAYS)
  47. RALTEGRAVIR POTASSIUM [Interacting]
     Active Substance: RALTEGRAVIR POTASSIUM
     Indication: HIV infection
  48. RALTEGRAVIR POTASSIUM [Interacting]
     Active Substance: RALTEGRAVIR POTASSIUM
     Dosage: 800 MILLIGRAM, QD (1 EVERY 1 DAYS)
  49. RALTEGRAVIR POTASSIUM [Interacting]
     Active Substance: RALTEGRAVIR POTASSIUM
     Dosage: 1 DOSAGE FORM, QD
  50. RALTEGRAVIR POTASSIUM [Interacting]
     Active Substance: RALTEGRAVIR POTASSIUM
     Dosage: 400 MILLIGRAM, QD (1 EVERY 1 DAYS)
  51. RALTEGRAVIR POTASSIUM [Interacting]
     Active Substance: RALTEGRAVIR POTASSIUM
     Dosage: 400 MILLIGRAM, QD (1 EVERY 12 HOURS)
  52. RALTEGRAVIR [Interacting]
     Active Substance: RALTEGRAVIR
     Indication: HIV infection
     Dosage: 400 MILLIGRAM, BID (1 EVERY 12 HOURS)
  53. RALTEGRAVIR [Interacting]
     Active Substance: RALTEGRAVIR
     Dosage: 400 MILLIGRAM, BID (1 EVERY 12 HOURS)
  54. RALTEGRAVIR [Interacting]
     Active Substance: RALTEGRAVIR
     Dosage: 400 MILLILITER, QD (1 EVERY 1 DAYS)
  55. RALTEGRAVIR [Interacting]
     Active Substance: RALTEGRAVIR
     Dosage: 800 MILLIGRAM, QD  (1 EVERY 1 DAYS)
  56. RIVOTRIL [Interacting]
     Active Substance: CLONAZEPAM
     Indication: Bipolar disorder
  57. SUSTIVA [Interacting]
     Active Substance: EFAVIRENZ
     Indication: HIV infection
  58. SUSTIVA [Interacting]
     Active Substance: EFAVIRENZ
     Dosage: 400 MILLIGRAM, BID (1 EVERY 12 HOURS)
  59. SUSTIVA [Interacting]
     Active Substance: EFAVIRENZ
     Dosage: 400 MILLIGRAM, QD (1 EVERY 12 HOURS)
  60. SUSTIVA [Interacting]
     Active Substance: EFAVIRENZ
     Dosage: 800 MILLIGRAM, QD (1 EVERY 1 DAY)
  61. ENFUVIRTIDE [Interacting]
     Active Substance: ENFUVIRTIDE
     Indication: HIV infection
  62. ZOPICLONE [Interacting]
     Active Substance: ZOPICLONE
     Indication: Bipolar disorder
  63. ZOPICLONE [Interacting]
     Active Substance: ZOPICLONE
     Indication: Mental disorder
  64. CITALOPRAM HYDROBROMIDE [Interacting]
     Active Substance: CITALOPRAM HYDROBROMIDE
     Indication: Psychotic disorder
  65. CITALOPRAM HYDROBROMIDE [Interacting]
     Active Substance: CITALOPRAM HYDROBROMIDE
     Indication: Mental disorder
  66. RISPERIDONE [Interacting]
     Active Substance: RISPERIDONE
     Indication: Depression
  67. RITONAVIR [Interacting]
     Active Substance: RITONAVIR
     Indication: Depression
  68. RITONAVIR [Interacting]
     Active Substance: RITONAVIR
     Indication: HIV infection
  69. VIREAD [Interacting]
     Active Substance: TENOFOVIR DISOPROXIL FUMARATE
     Indication: Product used for unknown indication
  70. ATAZANAVIR SULFATE [Suspect]
     Active Substance: ATAZANAVIR SULFATE
     Indication: HIV infection
  71. CITALOPRAM [Interacting]
     Active Substance: CITALOPRAM
     Indication: Mental disorder
  72. CITALOPRAM [Interacting]
     Active Substance: CITALOPRAM
     Indication: Psychotic disorder
  73. TENOFOVIR DISOPROXIL FUMARATE [Interacting]
     Active Substance: TENOFOVIR DISOPROXIL FUMARATE
     Indication: Product used for unknown indication
  74. ATAZANAVIR [Interacting]
     Active Substance: ATAZANAVIR
     Indication: HIV infection
  75. ATAZANAVIR [Interacting]
     Active Substance: ATAZANAVIR
  76. ATAZANAVIR [Interacting]
     Active Substance: ATAZANAVIR
  77. VALPROATE SODIUM [Suspect]
     Active Substance: VALPROATE SODIUM
     Indication: Bipolar disorder
  78. VALPROATE SODIUM [Interacting]
     Active Substance: VALPROATE SODIUM
     Indication: Bipolar disorder
  79. EMTRIVA [Concomitant]
     Active Substance: EMTRICITABINE
     Indication: Product used for unknown indication
  80. ENFUVIRTIDE [Concomitant]
     Active Substance: ENFUVIRTIDE
     Indication: HIV infection
  81. ENFUVIRTIDE [Concomitant]
     Active Substance: ENFUVIRTIDE

REACTIONS (16)
  - Depression suicidal [Fatal]
  - Paranoia [Fatal]
  - Psychiatric decompensation [Fatal]
  - Psychomotor skills impaired [Fatal]
  - Tearfulness [Fatal]
  - Depressive symptom [Fatal]
  - Psychotic disorder [Fatal]
  - Suicidal ideation [Fatal]
  - Anxiety [Fatal]
  - Product use in unapproved indication [Fatal]
  - Depression [Fatal]
  - Drug interaction [Fatal]
  - Intentional product use issue [Fatal]
  - Loss of personal independence in daily activities [Fatal]
  - Prescribed overdose [Fatal]
  - Incorrect route of product administration [Fatal]
